FAERS Safety Report 4938217-X (Version None)
Quarter: 2006Q1

REPORT INFORMATION
  Report Type: 
  Country: None (occurrence: None)
  Receive Date: 20060309
  Receipt Date: 20051024
  Transmission Date: 20060701
  Serious: Yes (Other)
  Sender: FDA-Public Use
  Company Number: AU-ROCHE-422618

PATIENT
  Age: 61 Year
  Sex: Male
  Weight: 82 kg

DRUGS (3)
  1. XELODA [Suspect]
     Route: 048
     Dates: start: 20050803, end: 20050907
  2. XELODA [Suspect]
     Route: 048
     Dates: start: 20050908
  3. OXALIPLATIN [Concomitant]
     Indication: COLORECTAL CANCER
     Route: 042
     Dates: start: 20050803

REACTIONS (1)
  - URETHRAL ULCER [None]
